FAERS Safety Report 8965379 (Version 1)
Quarter: 2012Q4

REPORT INFORMATION
  Report Type: Report from Study
  Country: US (occurrence: US)
  Receive Date: 20121213
  Receipt Date: 20121213
  Transmission Date: 20130627
  Serious: Yes (Other)
  Sender: FDA-Public Use
  Company Number: US-BRISTOL-MYERS SQUIBB COMPANY-17176942

PATIENT
  Age: 62 Year
  Sex: Male
  Weight: 102.3 kg

DRUGS (1)
  1. IPILIMUMAB [Suspect]
     Indication: MALIGNANT MELANOMA
     Dosage: Last dose:22Oct2012
     Route: 042
     Dates: start: 20120910

REACTIONS (1)
  - Confusional state [Recovered/Resolved]
